FAERS Safety Report 5335882-2 (Version None)
Quarter: 2007Q1

REPORT INFORMATION
  Report Type: 
  Country: None (occurrence: None)
  Receive Date: 20070301
  Receipt Date: 20060404
  Transmission Date: 20070707
  Serious: Yes (Other)
  Sender: FDA-Public Use
  Company Number: 223585

PATIENT
  Age: 13 Year
  Sex: Male
  Weight: 62.7 kg

DRUGS (1)
  1. NUTROPIN AQ [Suspect]
     Indication: GROWTH HORMONE DEFICIENCY
     Dosage: 2.6 MG, SUBCUTANEOUS
     Route: 058
     Dates: start: 20060202

REACTIONS (1)
  - BENIGN INTRACRANIAL HYPERTENSION [None]
